FAERS Safety Report 8580006-1 (Version None)
Quarter: 2012Q3

REPORT INFORMATION
  Report Type: 
  Country: None (occurrence: None)
  Receive Date: 20120808
  Receipt Date: 20120730
  Transmission Date: 20120928
  Serious: Yes (Other)
  Sender: FDA-Public Use
  Company Number: US-ASTRAZENECA-2012SE49106

PATIENT
  Age: 74 Year
  Sex: Female
  Weight: 74.8 kg

DRUGS (12)
  1. METHYLDOPA [Concomitant]
     Indication: HYPERTENSION
     Route: 048
  2. NEXIUM [Suspect]
     Route: 048
     Dates: start: 20071001
  3. NEXIUM [Suspect]
     Route: 048
     Dates: start: 20071001
  4. NEURONTIN [Concomitant]
     Indication: RESTLESS LEGS SYNDROME
     Route: 048
  5. NEXIUM [Suspect]
     Indication: GASTROOESOPHAGEAL REFLUX DISEASE
     Route: 048
     Dates: start: 20030101, end: 20040101
  6. PRAVASTATIN [Concomitant]
     Indication: BLOOD CHOLESTEROL INCREASED
     Route: 048
  7. NEXIUM [Suspect]
     Route: 048
     Dates: start: 20030101
  8. HORMONES [Suspect]
     Route: 065
  9. BYETTA [Concomitant]
     Indication: DIABETES MELLITUS
     Route: 048
  10. NEXIUM [Suspect]
     Indication: ULCER
     Route: 048
     Dates: start: 20030101, end: 20040101
  11. LISINOPRIL [Concomitant]
     Indication: DIURETIC THERAPY
     Route: 048
  12. NEXIUM [Suspect]
     Route: 048
     Dates: start: 20030101

REACTIONS (5)
  - CHOKING [None]
  - ULCER [None]
  - OFF LABEL USE [None]
  - ABDOMINAL PAIN [None]
  - BREAST CANCER FEMALE [None]
